FAERS Safety Report 6558441-2 (Version None)
Quarter: 2010Q1

REPORT INFORMATION
  Report Type: 
  Country: None (occurrence: None)
  Receive Date: 20100129
  Receipt Date: 20100121
  Transmission Date: 20100710
  Serious: Yes (Other)
  Sender: FDA-Public Use
  Company Number: CA-ABBOTT-09P-028-0605913-01

PATIENT
  Sex: Female
  Weight: 67 kg

DRUGS (21)
  1. HUMIRA [Suspect]
     Indication: COLITIS ULCERATIVE
     Route: 058
     Dates: start: 20090422, end: 20091022
  2. ATACAND HCT [Concomitant]
     Indication: HYPERTENSION
     Dates: start: 20070101
  3. CALCIUM [Concomitant]
     Indication: OSTEOPENIA
     Dates: start: 20041001, end: 20090409
  4. CALCIUM [Concomitant]
     Indication: MEDICAL DIET
     Dates: start: 20090522
  5. MULTI-VITAMIN [Concomitant]
     Indication: MEDICAL DIET
     Dates: start: 20081201, end: 20090409
  6. DIDRONEL [Concomitant]
     Indication: OSTEOPENIA
     Dates: start: 20090506
  7. PREDNISONE [Concomitant]
     Indication: COLITIS ULCERATIVE
     Dates: start: 20090521, end: 20090703
  8. PREDNISONE [Concomitant]
     Dates: start: 20090604, end: 20090610
  9. PREDNISONE [Concomitant]
     Dates: start: 20090611, end: 20090617
  10. PREDNISONE [Concomitant]
     Dates: start: 20090618, end: 20090624
  11. PREDNISONE [Concomitant]
     Dates: start: 20090625, end: 20090701
  12. PREDNISONE [Concomitant]
     Dates: start: 20090702, end: 20090708
  13. PREDNISONE [Concomitant]
     Dates: start: 20090709, end: 20090715
  14. PREDNISONE [Concomitant]
     Dates: start: 20090716, end: 20090722
  15. PREDNISONE [Concomitant]
     Dates: start: 20090723, end: 20090729
  16. PREDNISONE [Concomitant]
     Dates: start: 20090730, end: 20090805
  17. PREDNISONE [Concomitant]
     Dates: start: 20090806, end: 20090812
  18. ZOPICLONE [Concomitant]
     Indication: SLEEP DISORDER
     Dates: start: 20090522
  19. VITAMIN D [Concomitant]
     Indication: MEDICAL DIET
     Dates: start: 20090522
  20. TYLENOL HEAD/SINUS [Concomitant]
     Indication: NASOPHARYNGITIS
     Dates: start: 20090907
  21. MODULON [Concomitant]
     Indication: ABDOMINAL DISTENSION
     Dates: start: 20090915

REACTIONS (1)
  - BREAST CANCER [None]
